FAERS Safety Report 6911354-6 (Version None)
Quarter: 2010Q3

REPORT INFORMATION
  Report Type: 
  Country: None (occurrence: None)
  Receive Date: 20100806
  Receipt Date: 20100802
  Transmission Date: 20110219
  Serious: Yes (Other)
  Sender: FDA-Public Use
  Company Number: US-BRISTOL-MYERS SQUIBB COMPANY-15222334

PATIENT
  Age: 48 Year
  Sex: Female

DRUGS (1)
  1. KENALOG [Suspect]
     Dates: start: 20070101

REACTIONS (5)
  - ANXIETY [None]
  - INJECTION SITE ATROPHY [None]
  - MUSCLE ATROPHY [None]
  - PAIN [None]
  - WEIGHT DECREASED [None]
